FAERS Safety Report 22170555 (Version 1)
Quarter: 2023Q2

REPORT INFORMATION
  Report Type: Other
  Country: JP (occurrence: JP)
  Receive Date: 20230404
  Receipt Date: 20230404
  Transmission Date: 20230721
  Serious: Yes (Other)
  Sender: FDA-Public Use
  Company Number: JP-CHUGAI-2023011578AA

PATIENT
  Age: 66 Year
  Sex: Female

DRUGS (5)
  1. CELLCEPT [Suspect]
     Active Substance: MYCOPHENOLATE MOFETIL
     Indication: Prophylaxis against transplant rejection
     Dosage: UNK
     Route: 048
  2. TACROLIMUS [Concomitant]
     Active Substance: TACROLIMUS
     Dosage: UNK
     Route: 065
  3. METHYLPREDNISOLONE [Concomitant]
     Active Substance: METHYLPREDNISOLONE
     Dosage: UNK
  4. GABEXATE MESYLATE [Concomitant]
     Active Substance: GABEXATE MESYLATE
     Dosage: UNK
  5. PROSTANDIN [Concomitant]
     Dosage: UNK

REACTIONS (2)
  - Thrombotic microangiopathy [Recovering/Resolving]
  - Pneumonia cytomegaloviral [Recovering/Resolving]
